FAERS Safety Report 21088867 (Version 2)
Quarter: 2023Q1

REPORT INFORMATION
  Report Type: Spontaneous
  Country: US (occurrence: US)
  Receive Date: 20220715
  Receipt Date: 20230130
  Transmission Date: 20230417
  Serious: No
  Sender: FDA-Public Use
  Company Number: US-PFIZER INC-202200961974

PATIENT
  Age: 76 Year
  Sex: Female

DRUGS (1)
  1. IBRANCE [Suspect]
     Active Substance: PALBOCICLIB
     Dosage: TAKE 100MG DAILY FOR 21 DAYS FOLLOWED BY 7 DAYS, REPEAT EVERY 28 DAYS
     Route: 048

REACTIONS (1)
  - Muscle spasms [Unknown]
